FAERS Safety Report 8817084 (Version 1)
Quarter: 2012Q4

REPORT INFORMATION
  Report Type: Spontaneous
  Country: US (occurrence: None)
  Receive Date: 20121003
  Receipt Date: 20121003
  Transmission Date: 20130627
  Serious: Yes (Life-Threatening)
  Sender: FDA-Public Use
  Company Number: None

PATIENT
  Age: 65 Year
  Sex: Female
  Weight: 63.5 kg

DRUGS (1)
  1. CHLORHEXIDINE GLUCONATE [Suspect]
     Dosage: use 2 pints
     Route: 004
     Dates: start: 20120911, end: 20120918

REACTIONS (5)
  - Oral pain [None]
  - Swollen tongue [None]
  - Gingival bleeding [None]
  - Mouth ulceration [None]
  - Oral mucosal blistering [None]
